FAERS Safety Report 17598019 (Version 9)
Quarter: 2022Q1

REPORT INFORMATION
  Report Type: Spontaneous
  Country: US (occurrence: US)
  Receive Date: 20200330
  Receipt Date: 20220331
  Transmission Date: 20220423
  Serious: Yes (Hospitalization, Other)
  Sender: FDA-Public Use
  Company Number: US-PFIZER INC-2020126898

PATIENT
  Age: 51 Year
  Sex: Female

DRUGS (6)
  1. XELJANZ XR [Suspect]
     Active Substance: TOFACITINIB CITRATE
     Indication: Rheumatoid arthritis
     Dosage: 11 MG, 1X/DAY
     Route: 048
     Dates: start: 201908, end: 2020
  2. XELJANZ XR [Suspect]
     Active Substance: TOFACITINIB CITRATE
     Dosage: 11 MG, 1X/DAY
     Route: 048
     Dates: start: 202012
  3. XELJANZ XR [Suspect]
     Active Substance: TOFACITINIB CITRATE
     Dosage: 11 MG, 1X/DAY
     Route: 048
     Dates: end: 202112
  4. HYDROCHLOROTHIAZIDE [Concomitant]
     Active Substance: HYDROCHLOROTHIAZIDE
     Dosage: UNK
  5. PLAQUENIL [Concomitant]
     Active Substance: HYDROXYCHLOROQUINE SULFATE
     Dosage: UNK
  6. BACTRIM [Concomitant]
     Active Substance: SULFAMETHOXAZOLE\TRIMETHOPRIM
     Dosage: UNK

REACTIONS (13)
  - Spinal disorder [Unknown]
  - Spinal fusion surgery [Unknown]
  - Wound infection [Unknown]
  - Product dose omission in error [Unknown]
  - Intentional dose omission [Unknown]
  - Condition aggravated [Unknown]
  - Arthralgia [Recovering/Resolving]
  - Malaise [Unknown]
  - Inflammation [Unknown]
  - Gait disturbance [Unknown]
  - Migraine [Unknown]
  - Asthenia [Unknown]
  - Neck pain [Unknown]

NARRATIVE: CASE EVENT DATE: 20200512
